FAERS Safety Report 10190266 (Version 1)
Quarter: 2014Q2

REPORT INFORMATION
  Report Type: Spontaneous
  Country: US (occurrence: None)
  Receive Date: 20140521
  Receipt Date: 20140521
  Transmission Date: 20141212
  Serious: Yes (Other)
  Sender: FDA-Public Use
  Company Number: None

PATIENT
  Sex: Female
  Weight: 104.5 kg

DRUGS (2)
  1. HUMIRA PEN [Suspect]
     Indication: RHEUMATOID ARTHRITIS
     Dosage: 40MG Q2WEEKS SUBQ
     Route: 058
     Dates: start: 20140401
  2. HUMIRA PEN [Suspect]
     Indication: ANKYLOSING SPONDYLITIS
     Dosage: 40MG Q2WEEKS SUBQ
     Route: 058
     Dates: start: 20140401

REACTIONS (4)
  - Injection site reaction [None]
  - Headache [None]
  - Injection site swelling [None]
  - Injection site bruising [None]
